FAERS Safety Report 12957879 (Version 2)
Quarter: 2017Q2

REPORT INFORMATION
  Report Type: Spontaneous
  Country: DE (occurrence: DE)
  Receive Date: 20161118
  Receipt Date: 20170520
  Transmission Date: 20170830
  Serious: Yes (Life-Threatening, Hospitalization)
  Sender: FDA-Public Use
  Company Number: DE-B.I. PHARMACEUTICALS,INC./RIDGEFIELD-2016-BI-072343

PATIENT
  Age: 56 Year
  Sex: Male

DRUGS (1)
  1. PRADAXA [Suspect]
     Active Substance: DABIGATRAN ETEXILATE MESYLATE
     Indication: ATRIAL FIBRILLATION
     Route: 065

REACTIONS (5)
  - Aphasia [Unknown]
  - Headache [Unknown]
  - Cerebral haemorrhage [Unknown]
  - Intraventricular haemorrhage [Unknown]
  - Hemianopia [Unknown]
